FAERS Safety Report 9204608 (Version 2)
Quarter: 2013Q4

REPORT INFORMATION
  Report Type: Spontaneous
  Country: US (occurrence: US)
  Receive Date: 20130402
  Receipt Date: 20131204
  Transmission Date: 20140711
  Serious: Yes (Hospitalization, Disabling, Other)
  Sender: FDA-Public Use
  Company Number: US-BAYER-2013-039154

PATIENT
  Age: 27 Year
  Sex: Female

DRUGS (12)
  1. YAZ [Suspect]
     Dosage: UNK
     Dates: start: 2008, end: 2011
  2. YASMIN [Suspect]
     Dosage: UNK
     Dates: start: 2008, end: 2011
  3. OCELLA [Suspect]
     Dosage: UNK
     Dates: start: 2008, end: 2011
  4. BEYAZ [Suspect]
     Dosage: UNK
     Dates: start: 2008, end: 2011
  5. LEVOTHYROXINE [Concomitant]
     Dosage: 0.075 MG (75 MCG) - TAKE 1 TABLET EVERYDAY
     Route: 048
  6. LEVOTHYROXINE [Concomitant]
     Dosage: 45 MEQ QD
     Route: 048
  7. SYNTHROID [Concomitant]
     Dosage: 0.075 MG (75 MCG) - TAKE 1 TABLET EVERYDAY
  8. SYNTHROID [Concomitant]
     Dosage: 45 MEQ QD
  9. IBUPROFEN [Concomitant]
     Dosage: 800 MG - TAKE 1 TABLET THREE TIMES DAILY
     Route: 048
  10. CYCLOBENZAPRINE [Concomitant]
     Dosage: 10 MG - TAKE 1 TABLET THREE TIMES DAILY
     Route: 048
  11. METFORMIN [Concomitant]
     Dosage: 500 MG - TAKE 1 TABLET EVERYDAY
     Route: 048
  12. ZYRTEC [Concomitant]
     Dosage: UNK UNK, QD

REACTIONS (8)
  - Gallbladder disorder [None]
  - Cholecystitis chronic [None]
  - Deformity [None]
  - Injury [None]
  - Anxiety [None]
  - Anhedonia [None]
  - Pain [None]
  - Emotional distress [None]
